FAERS Safety Report 23696071 (Version 2)
Quarter: 2025Q1

REPORT INFORMATION
  Report Type: Report from Study
  Country: JP (occurrence: JP)
  Receive Date: 20240402
  Receipt Date: 20250304
  Transmission Date: 20250408
  Serious: Yes (Death, Life-Threatening, Other)
  Sender: NOVARTIS
  Company Number: JP-002147023-NVSJ2021JP008747

PATIENT
  Age: 15 Year
  Sex: Female
  Weight: 49.7 kg

DRUGS (3)
  1. KYMRIAH [Suspect]
     Active Substance: TISAGENLECLEUCEL
     Indication: Acute lymphocytic leukaemia
     Route: 041
     Dates: start: 20210212, end: 20210212
  2. FLUDARABINE PHOSPHATE [Concomitant]
     Active Substance: FLUDARABINE PHOSPHATE
     Indication: Lymphodepletion
     Route: 065
     Dates: start: 20210207
  3. CYCLOPHOSPHAMIDE [Concomitant]
     Active Substance: CYCLOPHOSPHAMIDE
     Indication: Lymphodepletion
     Route: 065
     Dates: start: 20210207

REACTIONS (16)
  - Acute lymphocytic leukaemia [Fatal]
  - Serum ferritin increased [Fatal]
  - C-reactive protein increased [Fatal]
  - Malignant neoplasm progression [Fatal]
  - Nervous system disorder [Unknown]
  - Lymphocyte count decreased [Not Recovered/Not Resolved]
  - Hypogammaglobulinaemia [Recovered/Resolved]
  - Platelet count decreased [Not Recovered/Not Resolved]
  - Hypogammaglobulinaemia [Recovered/Resolved]
  - Hypogammaglobulinaemia [Unknown]
  - Staphylococcal bacteraemia [Unknown]
  - Citrobacter infection [Unknown]
  - Pseudomonas infection [Unknown]
  - Haemoglobin decreased [Unknown]
  - Bacterial infection [Recovered/Resolved]
  - Enterobacter infection [Unknown]

NARRATIVE: CASE EVENT DATE: 20210212
